FAERS Safety Report 4622324-5 (Version None)
Quarter: 2005Q1

REPORT INFORMATION
  Report Type: 
  Country: None (occurrence: None)
  Receive Date: 20050330
  Receipt Date: 20050323
  Transmission Date: 20050727
  Serious: Yes (Life-Threatening)
  Sender: FDA-Public Use
  Company Number: PHBS2005ES04172

PATIENT
  Age: 85 Year
  Sex: Female

DRUGS (6)
  1. GLYCERYL TRINITRATE [Suspect]
  2. HIGROTONA [Suspect]
     Dates: start: 20040719, end: 20040807
  3. RISPERDAL [Concomitant]
  4. CLOPIDOGREL BISULFATE [Concomitant]
  5. DILUTOL [Suspect]
     Dates: start: 20040719, end: 20040807
  6. APROVEL [Suspect]
     Dates: start: 20040719, end: 20040807

REACTIONS (3)
  - BLOOD CREATININE INCREASED [None]
  - BLOOD UREA INCREASED [None]
  - RENAL FAILURE ACUTE [None]
